FAERS Safety Report 8138961-X (Version None)
Quarter: 2012Q1

REPORT INFORMATION
  Report Type: 
  Country: None (occurrence: None)
  Receive Date: 20120215
  Receipt Date: 20120209
  Transmission Date: 20120608
  Serious: Yes (Death, Hospitalization)
  Sender: FDA-Public Use
  Company Number: US-GILEAD-2012-0048727

PATIENT
  Sex: Male

DRUGS (7)
  1. LETAIRIS [Suspect]
     Indication: IDIOPATHIC PULMONARY FIBROSIS
  2. TOPROL-XL [Concomitant]
     Indication: ARRHYTHMIA
  3. LASIX [Concomitant]
     Indication: FLUID RETENTION
  4. LETAIRIS [Suspect]
     Indication: PULMONARY HYPERTENSION
     Dosage: 5 MG, UNK
     Dates: start: 20111218, end: 20111228
  5. DILTIAZEM HCL [Concomitant]
     Indication: ARRHYTHMIA
  6. PREDNISONE TAB [Concomitant]
     Indication: CHRONIC OBSTRUCTIVE PULMONARY DISEASE
  7. PREDNISONE TAB [Concomitant]
     Indication: FIBROSIS

REACTIONS (4)
  - DYSPNOEA [None]
  - OXYGEN SATURATION DECREASED [None]
  - RESPIRATORY FAILURE [None]
  - IDIOPATHIC PULMONARY FIBROSIS [None]
